FAERS Safety Report 4490289-5 (Version None)
Quarter: 2004Q4

REPORT INFORMATION
  Report Type: 
  Country: None (occurrence: None)
  Receive Date: 20041101
  Receipt Date: 20041006
  Transmission Date: 20050328
  Serious: Yes (Life-Threatening, Hospitalization, Other)
  Sender: FDA-Public Use
  Company Number: AU-MERCK-0410AUS00085

PATIENT
  Age: 76 Year
  Sex: Female

DRUGS (9)
  1. VIOXX [Suspect]
     Indication: ARTHRITIS
     Route: 065
     Dates: start: 20021201, end: 20030801
  2. ARAVA [Concomitant]
     Route: 065
  3. METOPROLOL [Concomitant]
     Route: 065
  4. CARTIA (ASPIRIN) [Concomitant]
     Route: 065
  5. LOSEC (OMEPRAZOLE) [Concomitant]
     Route: 065
  6. PREDNISONE [Concomitant]
     Route: 065
  7. LIPEX [Concomitant]
     Route: 065
  8. XANAX [Concomitant]
     Route: 065
  9. ZOLOFT [Concomitant]
     Route: 065

REACTIONS (2)
  - CEREBROVASCULAR ACCIDENT [None]
  - MYOCARDIAL INFARCTION [None]
